FAERS Safety Report 16543247 (Version 1)
Quarter: 2019Q3

REPORT INFORMATION
  Report Type: Spontaneous
  Country: DE (occurrence: DE)
  Receive Date: 20190709
  Receipt Date: 20190709
  Transmission Date: 20191004
  Serious: Yes (Hospitalization, Other)
  Sender: FDA-Public Use
  Company Number: DE-GLAXOSMITHKLINE-DE2019121538

PATIENT
  Age: 16 Month
  Sex: Female
  Weight: 11 kg

DRUGS (2)
  1. ATROVENT [Concomitant]
     Active Substance: IPRATROPIUM BROMIDE
     Indication: NASOPHARYNGITIS
     Dosage: DAILY DOSE: 5 GTT DROP(S) EVERY DAYS
     Route: 055
     Dates: start: 20190215, end: 20190219
  2. SALBUTAMOL [Suspect]
     Active Substance: ALBUTEROL
     Indication: NASOPHARYNGITIS
     Dosage: 3?-2?-3?
     Route: 055
     Dates: start: 20190215, end: 20190219

REACTIONS (3)
  - Product administration error [Recovered/Resolved]
  - Pneumonia [Recovered/Resolved]
  - Wrong dose [Recovered/Resolved]

NARRATIVE: CASE EVENT DATE: 20190219
